FAERS Safety Report 25846358 (Version 1)
Quarter: 2025Q3

REPORT INFORMATION
  Report Type: Spontaneous
  Country: US (occurrence: US)
  Receive Date: 20250925
  Receipt Date: 20250925
  Transmission Date: 20251020
  Serious: No
  Sender: SANOFI AVENTIS
  Company Number: US-SA-2025SA285539

PATIENT
  Age: 43 Year
  Sex: Female

DRUGS (2)
  1. DUPIXENT [Suspect]
     Active Substance: DUPILUMAB
     Indication: Dermatitis allergic
     Dosage: 300 MG, QOW
     Route: 058
     Dates: start: 202507
  2. HYDROXYZINE HYDROCHLORIDE [Concomitant]
     Active Substance: HYDROXYZINE HYDROCHLORIDE

REACTIONS (3)
  - Pyrexia [Unknown]
  - Dermatitis allergic [Unknown]
  - Condition aggravated [Unknown]

NARRATIVE: CASE EVENT DATE: 20250101
